FAERS Safety Report 21054525 (Version 1)
Quarter: 2022Q3

REPORT INFORMATION
  Report Type: Spontaneous
  Country: US (occurrence: US)
  Receive Date: 20220707
  Receipt Date: 20220707
  Transmission Date: 20221027
  Serious: No
  Sender: FDA-Public Use
  Company Number: US-PFIZER INC-202200276757

PATIENT
  Age: 79 Year
  Sex: Female

DRUGS (1)
  1. IBRANCE [Suspect]
     Active Substance: PALBOCICLIB
     Indication: Breast cancer
     Dosage: 75 MG, CYCLIC (FOR 21 DAYS OF A 42 DAY CYCLE( (3 WEEKS ON, 3 WEEKS OFF))
     Route: 048

REACTIONS (5)
  - Off label use [Unknown]
  - Neoplasm progression [Unknown]
  - Stress [Unknown]
  - Weight decreased [Unknown]
  - Nervousness [Unknown]
